FAERS Safety Report 19019910 (Version 1)
Quarter: 2021Q1

REPORT INFORMATION
  Report Type: Spontaneous
  Country: US (occurrence: US)
  Receive Date: 20210317
  Receipt Date: 20210317
  Transmission Date: 20210420
  Serious: Yes (Other)
  Sender: FDA-Public Use
  Company Number: None

PATIENT
  Sex: Female
  Weight: 50.85 kg

DRUGS (11)
  1. ARMOUR THYROID [Concomitant]
     Active Substance: THYROID, PORCINE
  2. TRAMADOL. [Concomitant]
     Active Substance: TRAMADOL
  3. VERZENIO [Concomitant]
     Active Substance: ABEMACICLIB
  4. COENZYME Q10 [Concomitant]
     Active Substance: DIETARY SUPPLEMENT\UBIDECARENONE
  5. LORAZEPAM. [Concomitant]
     Active Substance: LORAZEPAM
  6. BELSOMRA [Concomitant]
     Active Substance: SUVOREXANT
  7. TRIAMTERENE AND HYDROCHLOROTHIAZIDE [Concomitant]
     Active Substance: HYDROCHLOROTHIAZIDE\TRIAMTERENE
  8. ZOMETA [Concomitant]
     Active Substance: ZOLEDRONIC ACID
  9. PIQRAY [Suspect]
     Active Substance: ALPELISIB
     Indication: BREAST CANCER
     Dates: start: 20200411
  10. ONDANSETRON [Concomitant]
     Active Substance: ONDANSETRON
  11. SODIUM PHENYLBUTYRATE. [Concomitant]
     Active Substance: SODIUM PHENYLBUTYRATE

REACTIONS (1)
  - Hospice care [None]
